FAERS Safety Report 10398949 (Version 1)
Quarter: 2014Q3

REPORT INFORMATION
  Report Type: Spontaneous
  Country: US (occurrence: None)
  Receive Date: 20140818
  Receipt Date: 20140818
  Transmission Date: 20150326
  Serious: Yes (Other)
  Sender: FDA-Public Use
  Company Number: None

PATIENT
  Age: 35 Year
  Sex: Female
  Weight: 61.24 kg

DRUGS (2)
  1. LAMICTAL [Suspect]
     Active Substance: LAMOTRIGINE
     Indication: BIPOLAR II DISORDER
     Dosage: 2 ONCE DAILY TAKEN BY MOUTH
     Route: 048
     Dates: start: 20111118, end: 20140816
  2. LAMICTAL [Suspect]
     Active Substance: LAMOTRIGINE
     Indication: ANXIETY
     Dosage: 2 ONCE DAILY TAKEN BY MOUTH
     Route: 048
     Dates: start: 20111118, end: 20140816

REACTIONS (11)
  - Loss of libido [None]
  - Furuncle [None]
  - Anxiety [None]
  - Decreased appetite [None]
  - Hormone level abnormal [None]
  - Lethargy [None]
  - Sleep disorder [None]
  - Depression [None]
  - Asthenia [None]
  - Weight increased [None]
  - Amenorrhoea [None]

NARRATIVE: CASE EVENT DATE: 20140801
